FAERS Safety Report 21208050 (Version 1)
Quarter: 2022Q3

REPORT INFORMATION
  Report Type: Spontaneous
  Country: US (occurrence: US)
  Receive Date: 20220812
  Receipt Date: 20220812
  Transmission Date: 20221027
  Serious: Yes (Death, Life-Threatening)
  Sender: FDA-Public Use
  Company Number: US-drreddys-LIT/USA/22/0153215

PATIENT
  Age: 8 Month
  Sex: Male

DRUGS (18)
  1. TOPOTECAN HYDROCHLORIDE [Suspect]
     Active Substance: TOPOTECAN HYDROCHLORIDE
     Indication: Acute myeloid leukaemia
  2. TOPOTECAN HYDROCHLORIDE [Suspect]
     Active Substance: TOPOTECAN HYDROCHLORIDE
     Indication: Precursor T-lymphoblastic lymphoma/leukaemia
  3. VINORELBINE [Suspect]
     Active Substance: VINORELBINE TARTRATE
     Indication: Acute myeloid leukaemia
  4. VINORELBINE [Suspect]
     Active Substance: VINORELBINE TARTRATE
     Indication: Precursor T-lymphoblastic lymphoma/leukaemia
  5. THIOTEPA [Suspect]
     Active Substance: THIOTEPA
     Indication: Acute myeloid leukaemia
  6. THIOTEPA [Suspect]
     Active Substance: THIOTEPA
     Indication: Precursor T-lymphoblastic lymphoma/leukaemia
  7. CLOFARABINE [Suspect]
     Active Substance: CLOFARABINE
     Indication: Acute myeloid leukaemia
  8. CLOFARABINE [Suspect]
     Active Substance: CLOFARABINE
     Indication: Precursor T-lymphoblastic lymphoma/leukaemia
  9. NELARABINE [Suspect]
     Active Substance: NELARABINE
     Indication: Acute myeloid leukaemia
  10. NELARABINE [Suspect]
     Active Substance: NELARABINE
     Indication: Precursor T-lymphoblastic lymphoma/leukaemia
  11. VENETOCLAX [Suspect]
     Active Substance: VENETOCLAX
     Indication: Acute myeloid leukaemia
  12. VENETOCLAX [Suspect]
     Active Substance: VENETOCLAX
     Indication: Precursor T-lymphoblastic lymphoma/leukaemia
  13. NAVITOCLAX [Suspect]
     Active Substance: NAVITOCLAX
     Indication: Acute myeloid leukaemia
  14. NAVITOCLAX [Suspect]
     Active Substance: NAVITOCLAX
     Indication: Precursor T-lymphoblastic lymphoma/leukaemia
  15. DARATUMUMAB [Suspect]
     Active Substance: DARATUMUMAB
     Indication: Acute myeloid leukaemia
  16. DARATUMUMAB [Suspect]
     Active Substance: DARATUMUMAB
     Indication: Precursor T-lymphoblastic lymphoma/leukaemia
  17. GEMTUZUMAB OZOGAMICIN [Concomitant]
     Active Substance: GEMTUZUMAB OZOGAMICIN
     Indication: Chemotherapy
     Dosage: AS PER AAML0531
  18. GEMTUZUMAB OZOGAMICIN [Concomitant]
     Active Substance: GEMTUZUMAB OZOGAMICIN
     Dosage: RE-INDUCED PER AALL1231

REACTIONS (2)
  - Disease progression [Fatal]
  - Drug ineffective [Unknown]
